FAERS Safety Report 17799517 (Version 1)
Quarter: 2020Q2

REPORT INFORMATION
  Report Type: Spontaneous
  Country: US (occurrence: US)
  Receive Date: 20200518
  Receipt Date: 20200518
  Transmission Date: 20200714
  Serious: No
  Sender: FDA-Public Use
  Company Number: US-THERAPEUTICSMD-2020TMD01610

PATIENT
  Age: 56 Year
  Sex: Female
  Weight: 63.49 kg

DRUGS (4)
  1. UNSPECIFIED HIGH BLOOD PRESSURE MEDICATIONS [Concomitant]
     Active Substance: UNSPECIFIED INGREDIENT
  2. UNSPECIFIED VITAMIN SUPPLEMENTS [Concomitant]
  3. VERAPAMIL [Concomitant]
     Active Substance: VERAPAMIL HYDROCHLORIDE
  4. BIJUVA [Suspect]
     Active Substance: ESTRADIOL\PROGESTERONE
     Dosage: 1 CAPSULES, 1X/DAY
     Route: 048
     Dates: start: 202002, end: 2020

REACTIONS (2)
  - Breast pain [Recovered/Resolved]
  - Acne [Recovered/Resolved]

NARRATIVE: CASE EVENT DATE: 202003
